FAERS Safety Report 18786463 (Version 2)
Quarter: 2024Q1

REPORT INFORMATION
  Report Type: Spontaneous
  Country: US (occurrence: US)
  Receive Date: 20210126
  Receipt Date: 20240306
  Transmission Date: 20240410
  Serious: No
  Sender: FDA-Public Use
  Company Number: US-HORIZON-2021HZN00547

PATIENT

DRUGS (1)
  1. RAVICTI [Suspect]
     Active Substance: GLYCEROL PHENYLBUTYRATE
     Indication: Urea cycle disorder
     Dosage: 4.5ML ORAL THREE TIMES A DAY
     Route: 048
     Dates: start: 20190718

REACTIONS (3)
  - Agitation [Unknown]
  - Flatulence [Unknown]
  - Irritability [Unknown]
